FAERS Safety Report 16343365 (Version 1)
Quarter: 2019Q2

REPORT INFORMATION
  Report Type: Spontaneous
  Country: DE (occurrence: DE)
  Receive Date: 20190522
  Receipt Date: 20190522
  Transmission Date: 20190711
  Serious: Yes (Hospitalization, Other)
  Sender: FDA-Public Use
  Company Number: DE-TEVA-2019-DE-1052181

PATIENT
  Sex: Female
  Weight: 97.3 kg

DRUGS (1)
  1. PACLITAXEL. [Suspect]
     Active Substance: PACLITAXEL
     Indication: PRODUCT USED FOR UNKNOWN INDICATION
     Dosage: STRENGTH: 600 MG?DOSE: ONCE PER WEEK
     Route: 042

REACTIONS (4)
  - Pulse absent [Unknown]
  - Flushing [Unknown]
  - Loss of consciousness [Recovered/Resolved]
  - Hypersensitivity [Unknown]
